FAERS Safety Report 24701474 (Version 4)
Quarter: 2025Q1

REPORT INFORMATION
  Report Type: Spontaneous
  Country: GR (occurrence: GR)
  Receive Date: 20241205
  Receipt Date: 20250327
  Transmission Date: 20250408
  Serious: Yes (Other)
  Sender: SANOFI AVENTIS
  Company Number: GR-BIOVITRUM-2024-GR-015236

PATIENT
  Age: 39 Year
  Sex: Male
  Weight: 75 kg

DRUGS (6)
  1. ELOCTA [Suspect]
     Active Substance: EFMOROCTOCOG ALFA
     Indication: Factor VIII deficiency
     Dosage: 40 IU/KG, BIW
     Route: 065
     Dates: start: 201804
  2. ELOCTA [Suspect]
     Active Substance: EFMOROCTOCOG ALFA
     Indication: Factor VIII deficiency
     Dosage: 40 IU/KG, BIW
     Route: 065
     Dates: start: 201804
  3. ELOCTA [Suspect]
     Active Substance: EFMOROCTOCOG ALFA
     Indication: Poor venous access
     Dosage: 2000 IU, Q3D
     Route: 065
     Dates: start: 20180416
  4. ELOCTA [Suspect]
     Active Substance: EFMOROCTOCOG ALFA
     Indication: Poor venous access
     Dosage: 2000 IU, Q3D
     Route: 065
     Dates: start: 20180416
  5. ELOCTA [Suspect]
     Active Substance: EFMOROCTOCOG ALFA
     Dosage: 3000 IU, Q3D
     Route: 065
  6. ELOCTA [Suspect]
     Active Substance: EFMOROCTOCOG ALFA
     Dosage: 3000 IU, Q3D
     Route: 065

REACTIONS (2)
  - Haemarthrosis [Unknown]
  - Arthralgia [Not Recovered/Not Resolved]
